FAERS Safety Report 10072729 (Version 1)
Quarter: 2014Q2

REPORT INFORMATION
  Report Type: Spontaneous
  Country: US (occurrence: US)
  Receive Date: 20140411
  Receipt Date: 20140411
  Transmission Date: 20141212
  Serious: Yes (Other)
  Sender: FDA-Public Use
  Company Number: US-PFIZER INC-2014100468

PATIENT
  Age: 55 Year
  Sex: Female
  Weight: 45.35 kg

DRUGS (17)
  1. NEURONTIN [Suspect]
     Dosage: UNK
  2. LIPITOR [Concomitant]
     Dosage: 10 MG, UNK
  3. COZAAR [Concomitant]
     Indication: HYPERTENSION
     Dosage: 25 MG, UNK
  4. POTASSIUM [Concomitant]
     Dosage: UNK, 1X/DAY
  5. CO-ENZYME 10 [Concomitant]
     Dosage: UNK
  6. ATIVAN [Concomitant]
     Indication: CONVULSION
     Dosage: 1 MG, AS NEEDED
  7. ALEVE [Concomitant]
     Indication: HEADACHE
     Dosage: UNK
  8. VALIUM [Concomitant]
     Indication: CONVULSION
     Dosage: 10 MG, 1X/DAY
  9. VITAMIN D [Concomitant]
     Dosage: UNK
  10. CALCITRIOL [Concomitant]
     Dosage: 800 MG, 1X/DAY
  11. CALCIUM [Concomitant]
     Dosage: UNK, 1X/DAY
  12. VITAMIN B12 [Concomitant]
     Indication: VITAMIN B12 DEFICIENCY
     Dosage: 500 UG, UNK
  13. LORAZEPAM [Concomitant]
     Indication: EPILEPTIC AURA
     Dosage: 1 MG, UNK
  14. VITAMIN C [Concomitant]
     Dosage: UNK
  15. LYSINE [Concomitant]
     Dosage: 250 MG, 1X/DAY
  16. MELATONIN [Concomitant]
     Indication: INSOMNIA
     Dosage: 1 MG, 1X/DAY
  17. MAGNESIUM [Concomitant]
     Dosage: 250 MG, 1X/DAY

REACTIONS (5)
  - Suicidal ideation [Unknown]
  - Depression [Unknown]
  - Nightmare [Unknown]
  - Feeling abnormal [Unknown]
  - Abnormal behaviour [Unknown]
